FAERS Safety Report 8575299-0 (Version None)
Quarter: 2012Q3

REPORT INFORMATION
  Report Type: 
  Country: None (occurrence: None)
  Receive Date: 20120807
  Receipt Date: 20120801
  Transmission Date: 20120928
  Serious: No
  Sender: FDA-Public Use
  Company Number: US-PFIZER INC-2012187098

PATIENT
  Age: 84 Year
  Sex: Female

DRUGS (4)
  1. LISINOPRIL AND HYDROCHLOROTHIAZIDE [Suspect]
     Dosage: 10/12.5 MG, UNK
  2. PRAVASTATIN SODIUM [Suspect]
     Dosage: 40 MG, UNK
  3. LEVOTHYROXINE SODIUM [Suspect]
     Dosage: 0.5 MG, UNK
  4. CALTRATE 600 + D SOFT CHEWS [Suspect]
     Dosage: UNK, DAILY
     Route: 048
     Dates: start: 20120101

REACTIONS (5)
  - MADAROSIS [None]
  - POOR QUALITY DRUG ADMINISTERED [None]
  - ALOPECIA [None]
  - DYSPHAGIA [None]
  - PRODUCT CLOSURE ISSUE [None]
